FAERS Safety Report 7374997-4 (Version None)
Quarter: 2011Q1

REPORT INFORMATION
  Report Type: 
  Country: None (occurrence: None)
  Receive Date: 20110325
  Receipt Date: 20110314
  Transmission Date: 20110831
  Serious: Yes (Hospitalization)
  Sender: FDA-Public Use
  Company Number: PHHY2011IT18397

PATIENT
  Sex: Male

DRUGS (2)
  1. VOLTAREN [Suspect]
     Indication: BACK PAIN
     Dosage: 75 MG/3 ML, ONE POSOLOGICAL UNIT
     Route: 030
     Dates: start: 20110218, end: 20110218
  2. MUSCORIL [Suspect]
     Indication: BACK PAIN
     Dosage: 4 MG/2 ML, ONE POSOLOGICAL UNIT
     Route: 030
     Dates: start: 20110218, end: 20110218

REACTIONS (10)
  - MYOGLOBIN BLOOD INCREASED [None]
  - BLOOD CREATINE PHOSPHOKINASE INCREASED [None]
  - LIP DISORDER [None]
  - CARDIAC ENZYMES INCREASED [None]
  - LOSS OF CONSCIOUSNESS [None]
  - HYPERHIDROSIS [None]
  - TREMOR [None]
  - BLOOD CREATINE PHOSPHOKINASE MB [None]
  - SYNCOPE [None]
  - MUSCULOSKELETAL STIFFNESS [None]
